FAERS Safety Report 9452193 (Version 1)
Quarter: 2013Q3

REPORT INFORMATION
  Report Type: Spontaneous
  Country: US (occurrence: None)
  Receive Date: 20130808
  Receipt Date: 20130808
  Transmission Date: 20140515
  Serious: Yes (Death)
  Sender: FDA-Public Use
  Company Number: None

PATIENT
  Age: 56 Year
  Sex: Male
  Weight: 116 kg

DRUGS (9)
  1. XARELTO 20 MG JANSSEN [Suspect]
     Indication: ATRIAL FIBRILLATION
     Dosage: 30 TAB QD ORAL?
     Route: 048
     Dates: start: 20130701, end: 20130817
  2. LIPITOR [Concomitant]
  3. COREG [Concomitant]
  4. LASIX [Concomitant]
  5. LISINOPRIL [Concomitant]
  6. OMEPRAZOLE [Concomitant]
  7. OXYCODONE [Concomitant]
  8. SERTRALINE [Concomitant]
  9. BACTRIM [Concomitant]

REACTIONS (5)
  - Unresponsive to stimuli [None]
  - Pericardial haemorrhage [None]
  - Pericarditis [None]
  - Cardiac tamponade [None]
  - Myocardial infarction [None]
